FAERS Safety Report 6053483-8 (Version None)
Quarter: 2009Q1

REPORT INFORMATION
  Report Type: 
  Country: None (occurrence: None)
  Receive Date: 20090127
  Receipt Date: 20080527
  Transmission Date: 20090719
  Serious: No
  Sender: FDA-Public Use
  Company Number: US-TEVA-172484USA

PATIENT
  Sex: Female
  Weight: 138.47 kg

DRUGS (7)
  1. COPAXONE [Suspect]
     Indication: MULTIPLE SCLEROSIS
     Route: 058
     Dates: start: 20050501, end: 20070101
  2. INTERFERON BETA-1A [Suspect]
     Indication: RELAPSING-REMITTING MULTIPLE SCLEROSIS
     Route: 058
     Dates: start: 20040924, end: 20050501
  3. ACETYLSALICYLIC ACID [Concomitant]
     Route: 048
  4. MULTI-VITAMIN [Concomitant]
     Route: 048
  5. CALCIUM WITH VITAMIN D [Concomitant]
     Route: 048
  6. GINSENG [Concomitant]
  7. GREEB TEA WITH HOODIA [Concomitant]

REACTIONS (3)
  - DIABETES MELLITUS [None]
  - HEPATIC ENZYME INCREASED [None]
  - HEPATIC STEATOSIS [None]
